FAERS Safety Report 6236481-0 (Version None)
Quarter: 2009Q2

REPORT INFORMATION
  Report Type: 
  Country: None (occurrence: None)
  Receive Date: 20090619
  Receipt Date: 20090607
  Transmission Date: 20091009
  Serious: Yes (Other)
  Sender: FDA-Public Use
  Company Number: IL-PFIZER INC-2009223581

PATIENT
  Age: 49 Year

DRUGS (5)
  1. IDARUBICIN HCL [Suspect]
     Indication: ACUTE MONOCYTIC LEUKAEMIA
     Dosage: 12 MG/M2, FOR 3 DAYS
     Dates: start: 20000104
  2. CYTARABINE [Suspect]
     Indication: ACUTE MONOCYTIC LEUKAEMIA
     Dosage: 100 MG/M2, FOR 7 DAYS
     Dates: start: 20000104
  3. CYTARABINE [Suspect]
     Dosage: 3 G/M2 TWICE DAILY ON DAYS 1,3 AND 5
  4. ETOPOSIDE [Suspect]
     Indication: ACUTE MONOCYTIC LEUKAEMIA
     Dosage: 75 MG/M2, FOR 4 DAYS
     Dates: start: 20000104
  5. DAUNORUBICIN HCL [Suspect]
     Indication: ACUTE MONOCYTIC LEUKAEMIA
     Dosage: 45 MG/M2, FOR 3 DAYS

REACTIONS (5)
  - DIARRHOEA [None]
  - FEBRILE NEUTROPENIA [None]
  - NEUTROPENIA [None]
  - PANCYTOPENIA [None]
  - VENOOCCLUSIVE DISEASE [None]
